FAERS Safety Report 9482723 (Version 1)
Quarter: 2013Q3

REPORT INFORMATION
  Report Type: Spontaneous
  Country: US (occurrence: US)
  Receive Date: 20130828
  Receipt Date: 20130828
  Transmission Date: 20140515
  Serious: Yes (Other)
  Sender: FDA-Public Use
  Company Number: US-ASTRAZENECA-2013SE62691

PATIENT
  Age: 60 Year
  Sex: Female
  Weight: 116.6 kg

DRUGS (16)
  1. NEXIUM [Suspect]
     Indication: GASTROOESOPHAGEAL REFLUX DISEASE
     Route: 048
     Dates: start: 2002
  2. NEXIUM [Suspect]
     Indication: GASTROOESOPHAGEAL REFLUX DISEASE
     Route: 048
  3. BYETTA [Suspect]
     Indication: DIABETES MELLITUS
     Route: 058
     Dates: start: 2010
  4. CRESTOR [Suspect]
     Indication: BLOOD CHOLESTEROL ABNORMAL
     Route: 048
  5. CRESTOR [Suspect]
     Indication: BLOOD CHOLESTEROL ABNORMAL
     Route: 048
  6. ATENOLOL [Suspect]
     Indication: MIGRAINE
     Route: 048
  7. ATENOLOL [Suspect]
     Indication: BLOOD PRESSURE ABNORMAL
     Route: 048
  8. ATENOLOL [Suspect]
     Indication: MIGRAINE
     Route: 048
  9. ATENOLOL [Suspect]
     Indication: BLOOD PRESSURE ABNORMAL
     Route: 048
  10. LISINOPRIL [Suspect]
     Route: 048
     Dates: start: 2006
  11. METFORMIN HCL (NON AZ PRODUCT) [Suspect]
     Indication: DIABETES MELLITUS
     Route: 048
     Dates: start: 2005
  12. ASPIRIN [Concomitant]
     Route: 048
  13. LOSARTAN [Concomitant]
     Indication: BLOOD PRESSURE ABNORMAL
     Route: 048
     Dates: start: 2012
  14. STEROIDS [Concomitant]
     Indication: PSORIASIS
     Route: 061
  15. LASIX [Concomitant]
     Indication: FLUID RETENTION
     Route: 048
  16. ZANTAC [Concomitant]
     Indication: GASTROOESOPHAGEAL REFLUX DISEASE
     Route: 048

REACTIONS (7)
  - Mycosis fungoides [Not Recovered/Not Resolved]
  - Hiatus hernia [Unknown]
  - Cough [Recovered/Resolved]
  - Psoriasis [Not Recovered/Not Resolved]
  - Psoriatic arthropathy [Not Recovered/Not Resolved]
  - Fluid retention [Unknown]
  - Blood pressure increased [Unknown]
